FAERS Safety Report 8402164-1 (Version None)
Quarter: 2012Q2

REPORT INFORMATION
  Report Type: 
  Country: None (occurrence: None)
  Receive Date: 20120601
  Receipt Date: 20120522
  Transmission Date: 20120825
  Serious: Yes (Hospitalization)
  Sender: FDA-Public Use
  Company Number: US-JNJFOC-20120519152

PATIENT
  Age: 31 Year
  Sex: Male
  Weight: 105.5 kg

DRUGS (5)
  1. ACETAMINOPHEN [Suspect]
     Route: 048
  2. METHAMPHETAMINE HYDROCHLORIDE [Suspect]
     Indication: PRODUCT USED FOR UNKNOWN INDICATION
     Route: 065
  3. ACETAMINOPHEN [Suspect]
     Indication: PROCEDURAL PAIN
     Dosage: 5- 6 TABLETS UP TO FOUR TIMES DAILY
     Route: 048
  4. VICODIN [Suspect]
     Indication: PAIN
  5. TRAMADOL HCL [Suspect]
     Indication: PRODUCT USED FOR UNKNOWN INDICATION

REACTIONS (8)
  - LIVER FUNCTION TEST ABNORMAL [None]
  - HALLUCINATION [None]
  - BLOOD BILIRUBIN INCREASED [None]
  - TRANSAMINASES INCREASED [None]
  - PARANOIA [None]
  - MULTIPLE DRUG OVERDOSE [None]
  - PROTHROMBIN TIME PROLONGED [None]
  - DRUG SCREEN POSITIVE [None]
